FAERS Safety Report 9382271 (Version 2)
Quarter: 2013Q3

REPORT INFORMATION
  Report Type: Spontaneous
  Country: US (occurrence: US)
  Receive Date: 20130703
  Receipt Date: 20130719
  Transmission Date: 20140515
  Serious: Yes (Hospitalization)
  Sender: FDA-Public Use
  Company Number: US-GILEAD-2013-0078450

PATIENT
  Sex: Female

DRUGS (4)
  1. LETAIRIS [Suspect]
     Indication: PULMONARY HYPERTENSION
     Dosage: 10 MG, QD
     Route: 048
  2. LETAIRIS [Suspect]
     Indication: SCLERODERMA
  3. REVATIO [Concomitant]
  4. REMODULIN [Concomitant]

REACTIONS (1)
  - Device dislocation [Unknown]
